FAERS Safety Report 6815688-5 (Version None)
Quarter: 2010Q3

REPORT INFORMATION
  Report Type: 
  Country: None (occurrence: None)
  Receive Date: 20100702
  Receipt Date: 20100625
  Transmission Date: 20110219
  Serious: Yes (Hospitalization)
  Sender: FDA-Public Use
  Company Number: US-AMGEN-KDL419455

PATIENT
  Sex: Female
  Weight: 69.9 kg

DRUGS (10)
  1. ENBREL [Suspect]
     Indication: RHEUMATOID ARTHRITIS
     Route: 058
     Dates: start: 20050713
  2. ARAVA [Concomitant]
  3. SYNTHROID [Concomitant]
  4. NAPROXEN [Concomitant]
  5. ACTONEL [Concomitant]
  6. TYLENOL W/ CODEINE NO. 3 [Concomitant]
  7. NEXIUM [Concomitant]
  8. OSCAL D [Concomitant]
  9. VITAMIN C AND E [Concomitant]
  10. DIOVAN [Concomitant]

REACTIONS (7)
  - ARTHRALGIA [None]
  - BACK PAIN [None]
  - JOINT SWELLING [None]
  - LOCAL SWELLING [None]
  - OEDEMA PERIPHERAL [None]
  - PAIN IN EXTREMITY [None]
  - RHEUMATOID ARTHRITIS [None]
